FAERS Safety Report 8594815-6 (Version None)
Quarter: 2012Q3

REPORT INFORMATION
  Report Type: 
  Country: None (occurrence: None)
  Receive Date: 20120801
  Receipt Date: 20120720
  Transmission Date: 20120928
  Serious: Yes (Hospitalization, Other)
  Sender: FDA-Public Use
  Company Number: 2012000185

PATIENT
  Age: 75 Year
  Sex: Male

DRUGS (4)
  1. PREVISCAN (FLUINDIONE) [Suspect]
     Indication: PRODUCT USED FOR UNKNOWN INDICATION
     Dosage: 0.25 TABLET, QD, ORAL
     Route: 048
  2. CORDARONE [Suspect]
     Indication: PRODUCT USED FOR UNKNOWN INDICATION
     Dosage: 200 MG, 6 DAYS/WEEK, ORAL
     Route: 048
     Dates: end: 20120702
  3. ACEON [Suspect]
     Indication: PRODUCT USED FOR UNKNOWN INDICATION
     Dosage: 2 MG, QD, ORAL
     Route: 048
  4. BISOPROLOL FUMARATE [Suspect]
     Indication: PRODUCT USED FOR UNKNOWN INDICATION
     Dosage: 1.25 MG, QD, ORAL
     Route: 048

REACTIONS (8)
  - PYREXIA [None]
  - HAEMOPTYSIS [None]
  - LUNG DISORDER [None]
  - FATIGUE [None]
  - COUGH [None]
  - ACUTE RESPIRATORY FAILURE [None]
  - ASTHENIA [None]
  - HYPOXIA [None]
